FAERS Safety Report 7967742-2 (Version None)
Quarter: 2011Q4

REPORT INFORMATION
  Report Type: 
  Country: None (occurrence: None)
  Receive Date: 20111209
  Receipt Date: 20111209
  Transmission Date: 20120403
  Serious: Yes (Other)
  Sender: FDA-Public Use
  Company Number: None

PATIENT
  Age: 45 Year
  Sex: Female
  Weight: 68.038 kg

DRUGS (2)
  1. DROSPIRENONE AND ETHINYL ESTRADIOL [Suspect]
     Indication: CONTRACEPTION
     Dosage: .02 MG 3
     Route: 048
     Dates: start: 20110101, end: 20111101
  2. YAZ [Concomitant]
     Indication: CONTRACEPTION
     Dosage: .02 MG 3
     Route: 048
     Dates: start: 20050101, end: 20110101

REACTIONS (2)
  - MUSCLE SPASMS [None]
  - PRODUCT SUBSTITUTION ISSUE [None]
